FAERS Safety Report 6445370-8 (Version None)
Quarter: 2009Q4

REPORT INFORMATION
  Report Type: 
  Country: None (occurrence: None)
  Receive Date: 20091118
  Receipt Date: 20091106
  Transmission Date: 20100525
  Serious: Yes (Other)
  Sender: FDA-Public Use
  Company Number: US-B.I. PHARMACEUTICALS,INC./RIDGEFIELD-2009-DE-06943GD

PATIENT

DRUGS (8)
  1. CLONIDINE [Suspect]
     Indication: PAIN
     Route: 037
  2. CLONIDINE [Suspect]
     Indication: ABDOMINAL PAIN UPPER
  3. BUPIVACAINE [Suspect]
     Indication: PAIN
     Route: 037
  4. BUPIVACAINE [Suspect]
     Indication: ABDOMINAL PAIN UPPER
  5. HYDROMORPHONE [Suspect]
     Indication: PAIN
     Route: 037
  6. HYDROMORPHONE [Suspect]
     Indication: ABDOMINAL PAIN UPPER
  7. FENTANYL-100 [Suspect]
     Indication: PAIN
     Route: 037
  8. FENTANYL-100 [Suspect]
     Indication: ABDOMINAL PAIN UPPER

REACTIONS (5)
  - DRUG INEFFECTIVE [None]
  - INCISION SITE INFECTION [None]
  - MUSCULAR WEAKNESS [None]
  - PAIN IN EXTREMITY [None]
  - PNEUMONIA [None]
